FAERS Safety Report 9550371 (Version 2)
Quarter: 2014Q2

REPORT INFORMATION
  Report Type: Spontaneous
  Country: US (occurrence: US)
  Receive Date: 20130924
  Receipt Date: 20140402
  Transmission Date: 20141212
  Serious: No
  Sender: FDA-Public Use
  Company Number: US-SANOFI-AVENTIS-2013SA088853

PATIENT
  Age: 48 Year
  Sex: Female
  Weight: 73.9 kg

DRUGS (6)
  1. AUBAGIO [Suspect]
     Indication: MULTIPLE SCLEROSIS
     Route: 048
     Dates: start: 20130331
  2. AMLODIPINE [Concomitant]
     Indication: BLOOD PRESSURE
     Route: 065
     Dates: start: 2010
  3. ATORVASTATIN [Concomitant]
     Indication: BLOOD CHOLESTEROL
     Route: 065
     Dates: start: 2010
  4. BACLOFEN [Concomitant]
     Indication: MUSCLE SPASMS
     Route: 065
     Dates: start: 2012
  5. PRISTIQ [Concomitant]
     Indication: MUSCLE SPASMS
     Route: 065
     Dates: start: 2010
  6. TOLTERODINE [Concomitant]
     Route: 065
     Dates: start: 2009

REACTIONS (4)
  - Rash [Not Recovered/Not Resolved]
  - Skin irritation [Not Recovered/Not Resolved]
  - Alopecia [Not Recovered/Not Resolved]
  - Pruritus [Not Recovered/Not Resolved]
